FAERS Safety Report 8847460 (Version 1)
Quarter: 2012Q4

REPORT INFORMATION
  Report Type: 
  Country: US (occurrence: US)
  Receive Date: 20121018
  Receipt Date: 20121018
  Transmission Date: 20130627
  Serious: No
  Sender: FDA-Public Use
  Company Number: US-TARO-2011P1010270

PATIENT
  Age: 65 Year
  Sex: Male
  Weight: 72.58 kg

DRUGS (4)
  1. HYDROCORTISONE VALERATE CREAM 0.2% [Suspect]
     Indication: ECZEMA
     Route: 061
     Dates: start: 20111105, end: 20111106
  2. ZYRTEC [Concomitant]
     Route: 048
  3. ALLEGRA-D [Concomitant]
     Route: 048
  4. INHALER [Concomitant]
     Indication: ASTHMA
     Route: 055

REACTIONS (1)
  - Application site alopecia [Recovering/Resolving]
